FAERS Safety Report 4785086-7 (Version None)
Quarter: 2005Q3

REPORT INFORMATION
  Report Type: 
  Country: None (occurrence: None)
  Receive Date: 20050930
  Receipt Date: 20050909
  Transmission Date: 20060218
  Serious: Yes (Other)
  Sender: FDA-Public Use
  Company Number: JP-JNJFOC-20050904609

PATIENT
  Sex: Male

DRUGS (5)
  1. ITRIZOLE [Suspect]
     Indication: ONYCHOMYCOSIS
     Route: 048
     Dates: start: 20050808, end: 20050815
  2. NIFEDIPINE [Concomitant]
     Indication: HYPERTENSION
     Route: 048
     Dates: start: 20050525
  3. ASPIRIN [Concomitant]
     Indication: ANGINA PECTORIS
     Route: 048
     Dates: start: 20050525
  4. TIZANIDINE HYDROCHLORIDE [Concomitant]
     Indication: MUSCLE TIGHTNESS
     Route: 048
     Dates: start: 20050525
  5. TAMSULOSIN HYDROCHLORIDE [Concomitant]
     Route: 048
     Dates: start: 20050525, end: 20050806

REACTIONS (2)
  - HAEMATURIA [None]
  - RENAL CELL CARCINOMA STAGE UNSPECIFIED [None]
